FAERS Safety Report 7700955-3 (Version None)
Quarter: 2011Q3

REPORT INFORMATION
  Report Type: 
  Country: None (occurrence: None)
  Receive Date: 20110822
  Receipt Date: 20110811
  Transmission Date: 20111222
  Serious: Yes (Hospitalization)
  Sender: FDA-Public Use
  Company Number: JP-ROCHE-797378

PATIENT
  Sex: Female

DRUGS (7)
  1. PREDNISOLONE [Suspect]
     Indication: RHEUMATOID ARTHRITIS
     Dosage: PERORAL AGENT
     Route: 048
     Dates: end: 20080625
  2. FAMOTIDINE [Concomitant]
     Route: 048
  3. CLINORIL [Concomitant]
     Route: 048
  4. TOCILIZUMAB [Suspect]
     Indication: RHEUMATOID ARTHRITIS
     Route: 041
     Dates: start: 20080610, end: 20091026
  5. ALENDRONATE SODIUM [Concomitant]
     Dosage: DRUG REPORTED AS: FOSAMAC 5MG(ALENDRONATE SODIUM HYDRATE)
     Route: 048
  6. PREDNISOLONE [Suspect]
     Dosage: PERORAL AGENT
     Route: 048
     Dates: start: 20080726
  7. CEFAZOLIN [Concomitant]
     Dosage: DRUG REPORTED AS CEFAMEZIN ALPHA(CEFAZOLIN SODIUM)
     Route: 042
     Dates: start: 20091127, end: 20091129

REACTIONS (3)
  - DISLOCATION OF VERTEBRA [None]
  - HEPATIC FUNCTION ABNORMAL [None]
  - WOUND INFECTION STAPHYLOCOCCAL [None]
